FAERS Safety Report 8060103-X (Version None)
Quarter: 2012Q1

REPORT INFORMATION
  Report Type: 
  Country: None (occurrence: None)
  Receive Date: 20120120
  Receipt Date: 20120120
  Transmission Date: 20120608
  Serious: Yes (Other)
  Sender: FDA-Public Use
  Company Number: NO-BAYER-2012-005929

PATIENT
  Sex: Female

DRUGS (1)
  1. MIRENA [Suspect]
     Indication: CONTRACEPTION
     Dosage: 20 MCG/24HR, CONT
     Route: 015
     Dates: start: 20100101, end: 20120112

REACTIONS (4)
  - COITAL BLEEDING [None]
  - CERVICAL DYSPLASIA [None]
  - VAGINAL DISCHARGE [None]
  - DEVICE DISLOCATION [None]
